FAERS Safety Report 23874210 (Version 1)
Quarter: 2024Q2

REPORT INFORMATION
  Report Type: Spontaneous
  Country: US (occurrence: US)
  Receive Date: 20240520
  Receipt Date: 20240520
  Transmission Date: 20240716
  Serious: No
  Sender: FDA-Public Use
  Company Number: US-TEVA-VS-3195027

PATIENT
  Sex: Female

DRUGS (16)
  1. PENICILLAMINE [Suspect]
     Active Substance: PENICILLAMINE
     Indication: Product used for unknown indication
     Route: 065
  2. PREDNISONE [Concomitant]
     Active Substance: PREDNISONE
  3. ACETAMINOPHEN [Concomitant]
     Active Substance: ACETAMINOPHEN
  4. METHOTREXATE [Concomitant]
     Active Substance: METHOTREXATE
  5. FOLIC ACID [Concomitant]
     Active Substance: FOLIC ACID
  6. FAMOTIDINE [Concomitant]
     Active Substance: FAMOTIDINE
  7. AMLODIPINE [Concomitant]
     Active Substance: AMLODIPINE BESYLATE
  8. ROSUVASTATIN [Concomitant]
     Active Substance: ROSUVASTATIN
  9. CITALOPRAM [Concomitant]
     Active Substance: CITALOPRAM\CITALOPRAM HYDROBROMIDE
  10. OMEGA 3 [Concomitant]
     Active Substance: CAPSAICIN
  11. MOMETASONE [Concomitant]
     Active Substance: MOMETASONE
  12. ALENDRONATE [Concomitant]
     Active Substance: ALENDRONATE SODIUM
  13. VITAMIN D [Concomitant]
     Active Substance: VITAMIN D NOS
  14. CALCIUM [Concomitant]
     Active Substance: CALCIUM
  15. OMEPRAZOLE [Concomitant]
     Active Substance: DONEPEZIL HYDROCHLORIDE\OMEPRAZOLE\OMEPRAZOLE MAGNESIUM
  16. ASPIRIN [Concomitant]
     Active Substance: ASPIRIN

REACTIONS (1)
  - Rash [Unknown]
